FAERS Safety Report 5015469-1 (Version None)
Quarter: 2006Q2

REPORT INFORMATION
  Report Type: 
  Country: None (occurrence: None)
  Receive Date: 20060530
  Receipt Date: 20060530
  Transmission Date: 20061013
  Serious: No
  Sender: FDA-Public Use
  Company Number: None

PATIENT
  Age: 61 Year
  Sex: Female

DRUGS (4)
  1. OXYCODONE HCL [Suspect]
     Indication: POSTOPERATIVE ANALGESIA
  2. HYDROMORPHONE HCL [Suspect]
  3. CLONAZEPAM [Suspect]
  4. DIAZEPAM [Suspect]

REACTIONS (2)
  - HYPOTENSION [None]
  - RESTLESS LEGS SYNDROME [None]
